FAERS Safety Report 5876515-6 (Version None)
Quarter: 2008Q3

REPORT INFORMATION
  Report Type: 
  Country: None (occurrence: None)
  Receive Date: 20080910
  Receipt Date: 20080903
  Transmission Date: 20090109
  Serious: Yes (Death)
  Sender: FDA-Public Use
  Company Number: B0536297A

PATIENT
  Age: 41 Year
  Sex: Female

DRUGS (6)
  1. AUGMENTIN [Suspect]
     Indication: CELLULITIS
     Route: 048
     Dates: start: 20071227, end: 20080106
  2. AMOXICILLIN [Suspect]
     Indication: CELLULITIS
     Dosage: 1500MG PER DAY
     Route: 048
     Dates: end: 20080208
  3. ZERIT [Suspect]
     Indication: HIV INFECTION
     Dosage: 60MG PER DAY
     Route: 048
     Dates: start: 20071227, end: 20080208
  4. ALDACTONE [Suspect]
     Indication: DRUG USE FOR UNKNOWN INDICATION
     Dosage: 100MG PER DAY
     Route: 048
  5. EPIVIR [Suspect]
     Indication: HIV INFECTION
     Route: 048
  6. KALETRA [Suspect]
     Indication: HIV INFECTION
     Route: 048

REACTIONS (2)
  - DRUG INTERACTION [None]
  - HEPATIC FAILURE [None]
